FAERS Safety Report 21258184 (Version 1)
Quarter: 2022Q3

REPORT INFORMATION
  Report Type: Spontaneous
  Country: None (occurrence: US)
  Receive Date: 20220826
  Receipt Date: 20220826
  Transmission Date: 20221027
  Serious: No
  Sender: FDA-Public Use
  Company Number: US-ITALFARMACO SPA-2132258

PATIENT
  Age: 76 Year
  Sex: Male

DRUGS (8)
  1. TIGLUTIK [Suspect]
     Active Substance: RILUZOLE
     Indication: Amyotrophic lateral sclerosis
     Route: 048
     Dates: start: 20220507, end: 20220517
  2. ATROPINE [Concomitant]
     Active Substance: ATROPINE
  3. BISACODYL [Concomitant]
     Active Substance: BISACODYL
  4. DILTIAZEM [Concomitant]
     Active Substance: DILTIAZEM
  5. DOCUSATE [Concomitant]
     Active Substance: DOCUSATE
  6. METOPROLOL [Concomitant]
     Active Substance: METOPROLOL
  7. TAMSULOSIN HYDROCHLORIDE [Concomitant]
     Active Substance: TAMSULOSIN HYDROCHLORIDE
  8. XARELTO [Concomitant]
     Active Substance: RIVAROXABAN

REACTIONS (1)
  - Diarrhoea [Unknown]

NARRATIVE: CASE EVENT DATE: 20220507
